FAERS Safety Report 14187389 (Version 1)
Quarter: 2017Q4

REPORT INFORMATION
  Report Type: Spontaneous
  Country: ES (occurrence: ES)
  Receive Date: 20171114
  Receipt Date: 20171114
  Transmission Date: 20180321
  Serious: Yes (Life-Threatening, Hospitalization, Other)
  Sender: FDA-Public Use
  Company Number: ES-DSJP-DSE-2017-153689

PATIENT

DRUGS (2)
  1. AMLODIPINE [Concomitant]
     Active Substance: AMLODIPINE BESYLATE
     Indication: EXPOSURE DURING PREGNANCY
     Route: 064
  2. OLMESARTAN MEDOXOMIL. [Suspect]
     Active Substance: OLMESARTAN MEDOXOMIL
     Indication: EXPOSURE DURING PREGNANCY
     Route: 064

REACTIONS (9)
  - Pneumothorax [Unknown]
  - Foetal exposure during pregnancy [Recovered/Resolved]
  - Pulmonary hypoplasia [Unknown]
  - Renal failure [Recovered/Resolved]
  - Areflexia [Unknown]
  - Hypotension [Unknown]
  - Hypotonia neonatal [Unknown]
  - Potter^s syndrome [Unknown]
  - Anuria [Recovered/Resolved]
